FAERS Safety Report 10220729 (Version 1)
Quarter: 2014Q2

REPORT INFORMATION
  Report Type: Spontaneous
  Country: ES (occurrence: None)
  Receive Date: 20140604
  Receipt Date: 20140604
  Transmission Date: 20141212
  Serious: Yes (Life-Threatening, Hospitalization, Other)
  Sender: FDA-Public Use
  Company Number: 2014AP003214

PATIENT
  Age: 66 Year
  Sex: Male

DRUGS (5)
  1. ENALAPRIL/ HYDROCHLOROTHIAZIDE [Suspect]
     Indication: HYPERTENSION
     Route: 048
     Dates: start: 201207, end: 20130719
  2. IBUPROFEN [Suspect]
     Indication: ABDOMINAL PAIN
     Route: 048
     Dates: start: 20130710, end: 20130719
  3. DOXAZOSINA (DOXAZOSIN MESILATE) [Concomitant]
  4. ALOPURINOL (ALLOPURINOL) [Concomitant]
  5. ATORVASTATIN (ATORVASTATIN) [Concomitant]

REACTIONS (10)
  - Renal failure acute [None]
  - Deep vein thrombosis [None]
  - Hyperkalaemia [None]
  - Heart rate increased [None]
  - Hepatomegaly [None]
  - Ascites [None]
  - Asterixis [None]
  - Disorientation [None]
  - Cholecystitis [None]
  - Peritonitis [None]
